FAERS Safety Report 5837044 (Version 5)
Quarter: 2013Q1

REPORT INFORMATION
  Report Type: Spontaneous
  Country: US (occurrence: US)
  Receive Date: 20050714
  Receipt Date: 20130116
  Transmission Date: 20140127
  Serious: Yes (Other)
  Sender: FDA-Public Use
  Company Number: US-RB-1625-2005

PATIENT
  Age: 30 Year
  Sex: Female

DRUGS (2)
  1. SUBOXONE [Suspect]
     Indication: DRUG DEPENDENCE
     Route: 060
     Dates: start: 20040505, end: 20050125
  2. EFFEXOR [Concomitant]
     Indication: DEPRESSION
     Dosage: 26-JAN-2005: DR. ADVISED PT. TO TAPER DOSE BY 37.5 MGS. EVERY THIRD DAY - PT. RETURNED 225 ON 1-FEB
     Route: 048
     Dates: start: 20040505

REACTIONS (2)
  - Abortion spontaneous [Recovered/Resolved]
  - Exposure during pregnancy [Recovered/Resolved]
